FAERS Safety Report 11897941 (Version 1)
Quarter: 2016Q1

REPORT INFORMATION
  Report Type: Spontaneous
  Country: US (occurrence: US)
  Receive Date: 20160108
  Receipt Date: 20160108
  Transmission Date: 20160526
  Serious: No
  Sender: FDA-Public Use
  Company Number: US-BAYER-2016-004076

PATIENT
  Age: 76 Year
  Sex: Female
  Weight: 81.63 kg

DRUGS (2)
  1. ALEVE [Suspect]
     Active Substance: NAPROXEN SODIUM
     Indication: BACK PAIN
     Dosage: 1 DF, BID
     Route: 048
     Dates: end: 201501
  2. GLUCOSAMINE SULFATE [Concomitant]
     Active Substance: GLUCOSAMINE SULFATE

REACTIONS (2)
  - Product use issue [None]
  - Blood pressure increased [Recovered/Resolved]
